FAERS Safety Report 6129035-8 (Version None)
Quarter: 2009Q1

REPORT INFORMATION
  Report Type: 
  Country: None (occurrence: None)
  Receive Date: 20090324
  Receipt Date: 20090311
  Transmission Date: 20090719
  Serious: Yes (Disabling)
  Sender: FDA-Public Use
  Company Number: US-ELI_LILLY_AND_COMPANY-US200903002774

PATIENT
  Sex: Male

DRUGS (4)
  1. FORTEO [Suspect]
     Indication: SPINAL FRACTURE
     Dosage: UNK, UNK
     Dates: start: 20081201
  2. CORTICOSTEROID NOS [Concomitant]
  3. PREDNISONE [Concomitant]
  4. MESTINON [Concomitant]

REACTIONS (6)
  - BACK DISORDER [None]
  - BONE DISORDER [None]
  - DEAFNESS [None]
  - MYASTHENIA GRAVIS [None]
  - PAIN [None]
  - SPINAL FRACTURE [None]
